APPROVED DRUG PRODUCT: FERIDEX I.V.
Active Ingredient: FERUMOXIDES
Strength: EQ 11.2MG IRON/ML
Dosage Form/Route: INJECTABLE;INJECTION
Application: N020416 | Product #001
Applicant: AMAG PHARMACEUTICALS INC
Approved: Aug 30, 1996 | RLD: No | RS: No | Type: DISCN